FAERS Safety Report 5912744-0 (Version None)
Quarter: 2008Q4

REPORT INFORMATION
  Report Type: 
  Country: None (occurrence: None)
  Receive Date: 20081008
  Receipt Date: 20081003
  Transmission Date: 20090506
  Serious: Yes (Life-Threatening, Hospitalization, Disabling)
  Sender: FDA-Public Use
  Company Number: JP-BAYER-200811979BYL

PATIENT
  Age: 82 Year
  Sex: Female
  Weight: 57 kg

DRUGS (11)
  1. ASPIRIN [Suspect]
     Indication: CEREBRAL INFARCTION
     Dosage: TOTAL DAILY DOSE: 100 MG  UNIT DOSE: 100 MG
     Route: 048
     Dates: start: 20031201, end: 20080815
  2. RENIVEZE [Suspect]
     Indication: HYPERTENSION
     Dosage: TOTAL DAILY DOSE: 5 MG  UNIT DOSE: 5 MG
     Route: 048
     Dates: start: 20080416, end: 20080815
  3. AMLODIPINE [Suspect]
     Indication: HYPERTENSION
     Dosage: TOTAL DAILY DOSE: 5 MG  UNIT DOSE: 2.5 MG
     Route: 048
     Dates: end: 20080415
  4. URSO 250 [Suspect]
     Indication: CHOLELITHIASIS
     Dosage: TOTAL DAILY DOSE: 200 MG  UNIT DOSE: 100 MG
     Route: 048
     Dates: start: 19890101, end: 20080815
  5. MOHRUS TAPE [Suspect]
     Indication: BACK PAIN
     Route: 062
     Dates: start: 19940101, end: 20080815
  6. UNIPHYL LA [Suspect]
     Indication: ASTHMA
     Dosage: TOTAL DAILY DOSE: 200 MG  UNIT DOSE: 200 MG
     Route: 048
     Dates: start: 20070801, end: 20080815
  7. CLARITIN [Suspect]
     Indication: RHINITIS ALLERGIC
     Dosage: TOTAL DAILY DOSE: 10 MG  UNIT DOSE: 10 MG
     Route: 048
     Dates: start: 20070801, end: 20080815
  8. SINGULAIR [Suspect]
     Indication: ASTHMA
     Dosage: TOTAL DAILY DOSE: 10 MG  UNIT DOSE: 10 MG
     Route: 048
     Dates: start: 20070801, end: 20080815
  9. INTAL [Suspect]
     Indication: RHINITIS ALLERGIC
     Route: 045
     Dates: start: 20070801
  10. PULMICORT RESPULES [Suspect]
     Indication: ASTHMA
     Route: 055
     Dates: start: 20070801
  11. MUCODYNE [Suspect]
     Indication: DRUG USE FOR UNKNOWN INDICATION
     Route: 048

REACTIONS (2)
  - LEUKOCYTOCLASTIC VASCULITIS [None]
  - TUBULOINTERSTITIAL NEPHRITIS [None]
